FAERS Safety Report 25852548 (Version 1)
Quarter: 2025Q3

REPORT INFORMATION
  Report Type: Spontaneous
  Country: US (occurrence: US)
  Receive Date: 20250926
  Receipt Date: 20250926
  Transmission Date: 20251021
  Serious: Yes (Hospitalization)
  Sender: AUROBINDO
  Company Number: US-MLMSERVICE-20250908-PI638941-00312-1

PATIENT
  Age: 44 Year
  Sex: Male

DRUGS (2)
  1. TESTOSTERONE [Suspect]
     Active Substance: TESTOSTERONE
     Indication: Hormone therapy
     Route: 065
  2. TESTOSTERONE [Suspect]
     Active Substance: TESTOSTERONE
     Indication: Muscle strength abnormal

REACTIONS (4)
  - Hypoglycaemia [Recovering/Resolving]
  - Thrombocytosis [Recovering/Resolving]
  - Urinary tract infection [Unknown]
  - Intentional product misuse [Recovered/Resolved]
